FAERS Safety Report 8633468 (Version 5)
Quarter: 2019Q1

REPORT INFORMATION
  Report Type: Spontaneous
  Country: ES (occurrence: ES)
  Receive Date: 20120625
  Receipt Date: 20190215
  Transmission Date: 20190418
  Serious: Yes (Other)
  Sender: FDA-Public Use
  Company Number: PHHY2012ES051809

PATIENT
  Age: 38 Year
  Sex: Female

DRUGS (17)
  1. PARACETAMOL [Suspect]
     Active Substance: ACETAMINOPHEN
     Indication: RENAL PAIN
  2. DICLOFENAC [Suspect]
     Active Substance: DICLOFENAC
     Indication: NEPHRITIC SYNDROME
  3. DIAZEPAM. [Suspect]
     Active Substance: DIAZEPAM
     Indication: NEPHRITIC SYNDROME
  4. DICLOFENAC [Suspect]
     Active Substance: DICLOFENAC
     Indication: RENAL COLIC
     Dosage: 50 MG,Q12H
     Route: 030
  5. BUSCOPAN [Suspect]
     Active Substance: BUTYLSCOPOLAMINE BROMIDE
     Indication: NEPHRITIC SYNDROME
  6. BUSCOPAN [Suspect]
     Active Substance: BUTYLSCOPOLAMINE BROMIDE
     Indication: RENAL COLIC
  7. DICLOFENAC [Suspect]
     Active Substance: DICLOFENAC
     Indication: PAIN
     Dosage: 50 MG, BID (50 MG EVERY 12 HOURS)
     Route: 030
  8. BUSCOPAN [Suspect]
     Active Substance: BUTYLSCOPOLAMINE BROMIDE
     Indication: RENAL PAIN
     Route: 042
  9. DOLANTIN [Suspect]
     Active Substance: MEPERIDINE
     Indication: NEPHRITIC SYNDROME
  10. PARACETAMOL [Suspect]
     Active Substance: ACETAMINOPHEN
     Indication: NEPHRITIC SYNDROME
  11. METAMIZOL ^NORMON^ [Suspect]
     Active Substance: METAMIZOLE SODIUM
     Indication: RENAL COLIC
     Route: 065
  12. DOLANTIN [Suspect]
     Active Substance: MEPERIDINE
     Indication: RENAL COLIC
  13. DIAZEPAM. [Suspect]
     Active Substance: DIAZEPAM
     Indication: RENAL COLIC
     Route: 042
  14. DIPYRONE [Concomitant]
     Active Substance: DIPYRONE
     Indication: RENAL PAIN
     Route: 042
  15. PARACETAMOL [Suspect]
     Active Substance: ACETAMINOPHEN
     Indication: RENAL COLIC
     Route: 065
  16. METAMIZOL ^NORMON^ [Suspect]
     Active Substance: METAMIZOLE SODIUM
     Indication: NEPHRITIC SYNDROME
  17. DOLANTIN [Suspect]
     Active Substance: MEPERIDINE
     Indication: RENAL PAIN
     Route: 065

REACTIONS (4)
  - Oligohydramnios [Recovered/Resolved]
  - Delivery [None]
  - Pre-eclampsia [None]
  - Exposure during pregnancy [Unknown]
